FAERS Safety Report 7544771-4 (Version None)
Quarter: 2011Q2

REPORT INFORMATION
  Report Type: 
  Country: None (occurrence: None)
  Receive Date: 20110614
  Receipt Date: 20080720
  Transmission Date: 20111010
  Serious: Yes (Hospitalization, Disabling, Other)
  Sender: FDA-Public Use
  Company Number: US-BAYER-US-2007-040207

PATIENT
  Age: 61 Year
  Sex: Male
  Weight: 107.94 kg

DRUGS (27)
  1. MAGNEVIST [Suspect]
     Dosage: UNK
     Dates: start: 20040611, end: 20040611
  2. ZAROXOLYN [Concomitant]
  3. NORVASC [Concomitant]
  4. PROTONIX [Concomitant]
  5. SIMVASTATIN [Concomitant]
  6. LASIX [Concomitant]
  7. ZOCOR [Concomitant]
  8. GLYBURIDE [Concomitant]
  9. LIPITOR [Concomitant]
  10. METOPROLOL SUCCINATE [Concomitant]
  11. PRINIVIL [Concomitant]
  12. CLONIDINE [Concomitant]
  13. PROCRIT [Concomitant]
  14. IMDUR [Concomitant]
  15. MAGNEVIST [Suspect]
     Indication: ANGIOGRAM
     Dosage: 20 ML, UNK
     Dates: start: 20060405, end: 20060405
  16. TYLENOL PM [Concomitant]
  17. CALCITRIOL [Concomitant]
  18. LANTUS [Concomitant]
  19. HYDRALAZINE HCL [Concomitant]
  20. EPOGEN [Concomitant]
  21. ALLOPURINOL [Concomitant]
  22. EPIGEN [Concomitant]
  23. LOPRESSOR [Concomitant]
  24. KLOR-CON [Concomitant]
  25. NEXIUM [Concomitant]
  26. MINOXIDIL (FOR MEN) [Concomitant]
  27. CALCIUM CARBONATE [Concomitant]

REACTIONS (16)
  - RENAL FAILURE [None]
  - SKIN INDURATION [None]
  - OEDEMA PERIPHERAL [None]
  - JOINT RANGE OF MOTION DECREASED [None]
  - SKIN DISCOLOURATION [None]
  - BLISTER [None]
  - PEAU D'ORANGE [None]
  - SKIN HYPERTROPHY [None]
  - SKIN TIGHTNESS [None]
  - MUSCLE CONTRACTURE [None]
  - PAIN [None]
  - MUSCULOSKELETAL STIFFNESS [None]
  - SKIN HYPERPIGMENTATION [None]
  - NEPHROGENIC SYSTEMIC FIBROSIS [None]
  - DEPRESSION [None]
  - DRY SKIN [None]
